FAERS Safety Report 5721409-X (Version None)
Quarter: 2008Q2

REPORT INFORMATION
  Report Type: 
  Country: None (occurrence: None)
  Receive Date: 20080428
  Receipt Date: 20080428
  Transmission Date: 20081010
  Serious: Yes (Death)
  Sender: FDA-Public Use
  Company Number: None

PATIENT
  Age: 34 Year
  Sex: Male

DRUGS (1)
  1. ZYPREXA [Suspect]
     Indication: BIPOLAR DISORDER

REACTIONS (11)
  - BLOOD GLUCOSE INCREASED [None]
  - BRAIN INJURY [None]
  - CARDIO-RESPIRATORY ARREST [None]
  - CEREBRAL ARTERY EMBOLISM [None]
  - DIABETES MELLITUS [None]
  - DIALYSIS [None]
  - HEPATIC FAILURE [None]
  - LOSS OF CONSCIOUSNESS [None]
  - PANCREATIC DISORDER [None]
  - RENAL FAILURE ACUTE [None]
  - RESPIRATORY FAILURE [None]
